FAERS Safety Report 8583015-1 (Version None)
Quarter: 2012Q3

REPORT INFORMATION
  Report Type: 
  Country: None (occurrence: None)
  Receive Date: 20120809
  Receipt Date: 20120730
  Transmission Date: 20120928
  Serious: Yes (Hospitalization)
  Sender: FDA-Public Use
  Company Number: FR-ELI_LILLY_AND_COMPANY-FR201207008710

PATIENT
  Sex: Male

DRUGS (12)
  1. FOLIC ACID [Concomitant]
     Dosage: 0.4 MG, UNK
     Dates: start: 20120301
  2. EMEND [Concomitant]
     Dosage: 125 MG, UNK
     Dates: start: 20120305, end: 20120515
  3. VITAMIN B-12 [Concomitant]
     Dosage: 1000 MG, OTHER
  4. LYRICA [Concomitant]
  5. OXYCONTIN [Concomitant]
     Dosage: 90 MG, UNK
  6. ONDANSETRON [Concomitant]
     Dosage: 8 MG, UNKNOWN
  7. ALIMTA [Suspect]
     Indication: LUNG ADENOCARCINOMA
     Dosage: 900 MG, UNK
     Route: 042
     Dates: start: 20120305, end: 20120315
  8. CISPLATIN [Concomitant]
     Dosage: 140 MG, UNK
     Dates: start: 20120305, end: 20120515
  9. OXYCODONE HYDROCHLORIDE [Concomitant]
     Dosage: 5 MG, OTHER
  10. DEXAMETHASONE [Concomitant]
     Dosage: 4 MG, UNK
     Dates: start: 20120304, end: 20120516
  11. ZOMETA [Concomitant]
     Dosage: UNK
     Dates: start: 20120515, end: 20120515
  12. METHYLPREDNISOLONE [Concomitant]
     Dosage: 120 MG, UNK
     Dates: start: 20120305, end: 20120515

REACTIONS (2)
  - DYSPNOEA [None]
  - HAEMOLYTIC ANAEMIA [None]
